FAERS Safety Report 4654653-3 (Version None)
Quarter: 2005Q2

REPORT INFORMATION
  Report Type: 
  Country: None (occurrence: None)
  Receive Date: 20050504
  Receipt Date: 20050504
  Transmission Date: 20051028
  Serious: No
  Sender: FDA-Public Use
  Company Number: None

PATIENT
  Age: 59 Year
  Sex: Female

DRUGS (2)
  1. KETOROLAC 60 MG IM ABBOTT LABS [Suspect]
     Indication: BACK PAIN
     Dosage: 60 MG INTRAMUSCU
     Route: 030
  2. KETOROLAC 60 MG IM ABBOTT LABS [Suspect]
     Indication: PAIN IN EXTREMITY
     Dosage: 60 MG INTRAMUSCU
     Route: 030

REACTIONS (1)
  - RASH [None]
